FAERS Safety Report 5485846-3 (Version None)
Quarter: 2007Q4

REPORT INFORMATION
  Report Type: 
  Country: None (occurrence: None)
  Receive Date: 20071015
  Receipt Date: 20071005
  Transmission Date: 20080405
  Serious: Yes (Hospitalization)
  Sender: FDA-Public Use
  Company Number: FR-SANOFI-SYNTHELABO-F02200700004

PATIENT
  Sex: Male
  Weight: 80 kg

DRUGS (6)
  1. METFORMIN HCL [Concomitant]
     Route: 048
     Dates: start: 20030101
  2. IRBESARTAN [Concomitant]
     Route: 048
     Dates: start: 20060915
  3. PLACEBO [Suspect]
     Indication: PROPHYLAXIS
     Dosage: 125 ML OF GLUCOSE SOL 5%
     Route: 042
     Dates: start: 20070704, end: 20070704
  4. CA+MG [Suspect]
     Indication: PROPHYLAXIS
     Dosage: CALCIUM GLUCONATE 1G+ MAGNESIUM CHLORURE 1G IN 125 ML OF GLUCOSE SOL 5%
     Route: 042
     Dates: start: 20070704, end: 20070704
  5. FLUOROURACIL [Suspect]
     Indication: COLON CANCER METASTATIC
     Route: 042
     Dates: start: 20070706, end: 20070706
  6. ELOXATIN [Suspect]
     Indication: COLON CANCER METASTATIC
     Route: 042
     Dates: start: 20070704, end: 20070704

REACTIONS (2)
  - CHEST PAIN [None]
  - MYOPERICARDITIS [None]
